FAERS Safety Report 7682536-3 (Version None)
Quarter: 2011Q3

REPORT INFORMATION
  Report Type: 
  Country: None (occurrence: None)
  Receive Date: 20110815
  Receipt Date: 20110809
  Transmission Date: 20111222
  Serious: Yes (Hospitalization)
  Sender: FDA-Public Use
  Company Number: US-SHIRE-ALL1-2011-02639

PATIENT
  Sex: Male
  Weight: 92.971 kg

DRUGS (1)
  1. LIALDA [Suspect]
     Indication: COLITIS ULCERATIVE
     Dosage: 4.8 G, OTHER(FOUR 1.2 G TABLETS WITH MEALS)
     Route: 048
     Dates: start: 20110501, end: 20110703

REACTIONS (3)
  - HEPATITIS VIRAL [None]
  - HEADACHE [None]
  - BILIARY TRACT DISORDER [None]
